FAERS Safety Report 7941423-3 (Version None)
Quarter: 2011Q4

REPORT INFORMATION
  Report Type: 
  Country: None (occurrence: None)
  Receive Date: 20111122
  Receipt Date: 20111122
  Transmission Date: 20120403
  Serious: No
  Sender: FDA-Public Use
  Company Number: None

PATIENT
  Age: 67 Year
  Sex: Female
  Weight: 79.3795 kg

DRUGS (1)
  1. DEXILANT [Suspect]
     Indication: GASTROOESOPHAGEAL REFLUX DISEASE
     Dosage: 1 CAPSULE PER DAY
     Dates: start: 20110914, end: 20111103

REACTIONS (8)
  - NAUSEA [None]
  - GAIT DISTURBANCE [None]
  - PAIN [None]
  - JOINT SWELLING [None]
  - HEADACHE [None]
  - ARTHRALGIA [None]
  - INFLUENZA LIKE ILLNESS [None]
  - VOMITING [None]
